FAERS Safety Report 12170681 (Version 1)
Quarter: 2016Q1

REPORT INFORMATION
  Report Type: Report from Study
  Country: US (occurrence: US)
  Receive Date: 20160311
  Receipt Date: 20160311
  Transmission Date: 20160526
  Serious: Yes (Other)
  Sender: FDA-Public Use
  Company Number: US-AMGEN-USASL2016028417

PATIENT
  Age: 61 Year
  Sex: Female

DRUGS (3)
  1. ENBREL [Suspect]
     Active Substance: ETANERCEPT
     Dosage: 25 MG, QWK
     Route: 065
     Dates: start: 20151111
  2. ENBREL [Suspect]
     Active Substance: ETANERCEPT
     Indication: RHEUMATOID ARTHRITIS
     Dosage: 50 MG, QWK
     Route: 065
     Dates: start: 2013
  3. ENBREL [Suspect]
     Active Substance: ETANERCEPT
     Dosage: UNK UNK, QWK
     Route: 065

REACTIONS (8)
  - Increased tendency to bruise [Not Recovered/Not Resolved]
  - Incorrect dose administered [Unknown]
  - Laceration [Not Recovered/Not Resolved]
  - Cystitis [Unknown]
  - Bladder prolapse [Unknown]
  - Injection site bruising [Not Recovered/Not Resolved]
  - Atrial fibrillation [Unknown]
  - Injection site haemorrhage [Unknown]

NARRATIVE: CASE EVENT DATE: 20151111
